FAERS Safety Report 7739487-5 (Version None)
Quarter: 2011Q3

REPORT INFORMATION
  Report Type: 
  Country: None (occurrence: None)
  Receive Date: 20110909
  Receipt Date: 20110831
  Transmission Date: 20111222
  Serious: Yes (Hospitalization)
  Sender: FDA-Public Use
  Company Number: JP-JNJFOC-20110803470

PATIENT
  Age: 68 Year
  Sex: Male

DRUGS (6)
  1. REMICADE [Suspect]
     Indication: COLITIS ULCERATIVE
     Route: 042
     Dates: start: 20100101
  2. MESALAMINE [Suspect]
     Dosage: DOSE INCREASED IN 2010
     Route: 048
     Dates: start: 20100101
  3. PREDNISOLONE [Suspect]
     Route: 065
     Dates: start: 20100101
  4. MESALAMINE [Suspect]
     Indication: COLITIS ULCERATIVE
     Route: 048
  5. PREDNISOLONE [Suspect]
     Indication: COLITIS ULCERATIVE
     Route: 065
     Dates: start: 20100101
  6. TACROLIMUS [Suspect]
     Indication: COLITIS ULCERATIVE
     Route: 065
     Dates: start: 20100101

REACTIONS (3)
  - PNEUMOCYSTIS JIROVECI PNEUMONIA [None]
  - ASPERGILLUS TEST POSITIVE [None]
  - CYTOMEGALOVIRUS TEST POSITIVE [None]
